FAERS Safety Report 5786465-1 (Version None)
Quarter: 2008Q2

REPORT INFORMATION
  Report Type: 
  Country: None (occurrence: None)
  Receive Date: 20080624
  Receipt Date: 20070806
  Transmission Date: 20081010
  Serious: No
  Sender: FDA-Public Use
  Company Number: US-ASTRAZENECA-2007UW18983

PATIENT
  Sex: Female

DRUGS (4)
  1. PULMICORT RESPULES [Suspect]
     Route: 055
  2. HUMULIN 70/30 [Concomitant]
  3. BUMEX [Concomitant]
  4. DUONEB [Concomitant]

REACTIONS (1)
  - DYSPNOEA [None]
